FAERS Safety Report 4889783-4 (Version None)
Quarter: 2006Q1

REPORT INFORMATION
  Report Type: 
  Country: None (occurrence: None)
  Receive Date: 20060124
  Receipt Date: 20050609
  Transmission Date: 20060701
  Serious: Yes (Hospitalization)
  Sender: FDA-Public Use
  Company Number: US-MERCK-0506USA01501

PATIENT
  Age: 58 Year
  Sex: Male
  Weight: 84 kg

DRUGS (4)
  1. VIOXX [Suspect]
     Indication: SHOULDER PAIN
     Route: 048
     Dates: start: 19991214, end: 20040930
  2. VIOXX [Suspect]
     Indication: SPINAL OSTEOARTHRITIS
     Route: 048
     Dates: start: 19991214, end: 20040930
  3. ZESTRIL [Concomitant]
     Route: 048
  4. VERAPAMIL MSD LP [Concomitant]
     Route: 048

REACTIONS (9)
  - ACUTE MYOCARDIAL INFARCTION [None]
  - ANXIETY [None]
  - ARRHYTHMIA [None]
  - CORONARY ARTERY DISEASE [None]
  - HYPERTENSION [None]
  - HYPOKALAEMIA [None]
  - INSOMNIA [None]
  - NON-CARDIAC CHEST PAIN [None]
  - PROSTATE CANCER [None]
